FAERS Safety Report 8066116-6 (Version None)
Quarter: 2012Q1

REPORT INFORMATION
  Report Type: 
  Country: None (occurrence: None)
  Receive Date: 20120117
  Receipt Date: 20111130
  Transmission Date: 20120608
  Serious: No
  Sender: FDA-Public Use
  Company Number: THQ2011A08052

PATIENT
  Sex: Male

DRUGS (1)
  1. LANSOPRAZOLE [Suspect]
     Indication: PRODUCT USED FOR UNKNOWN INDICATION
     Dosage: 1 TABLET IN AM AND IN PM, PER ORAL
     Route: 048

REACTIONS (8)
  - PARAESTHESIA [None]
  - DYSGEUSIA [None]
  - PRODUCT CONTAINER ISSUE [None]
  - MYALGIA [None]
  - VISION BLURRED [None]
  - ARTHRALGIA [None]
  - FATIGUE [None]
  - MUSCULOSKELETAL PAIN [None]
